FAERS Safety Report 6998026-7 (Version None)
Quarter: 2010Q3

REPORT INFORMATION
  Report Type: 
  Country: None (occurrence: None)
  Receive Date: 20100920
  Receipt Date: 20100506
  Transmission Date: 20110219
  Serious: Yes (Hospitalization)
  Sender: FDA-Public Use
  Company Number: US-ASTRAZENECA-2010SE20647

PATIENT
  Age: 16 Year
  Sex: Male

DRUGS (1)
  1. SEROQUEL [Suspect]
     Indication: BIPOLAR DISORDER
     Route: 048
     Dates: start: 20100501, end: 20100501

REACTIONS (3)
  - DEHYDRATION [None]
  - INFLUENZA [None]
  - NEUROLEPTIC MALIGNANT SYNDROME [None]
